FAERS Safety Report 18285917 (Version 1)
Quarter: 2020Q3

REPORT INFORMATION
  Report Type: Report from Study
  Country: None (occurrence: TR)
  Receive Date: 20200919
  Receipt Date: 20200919
  Transmission Date: 20201103
  Serious: Yes (Death, Hospitalization)
  Sender: FDA-Public Use
  Company Number: TR-ABBVIE-20K-161-3572903-00

PATIENT
  Age: 56 Year
  Sex: Male

DRUGS (2)
  1. DUODOPA [Suspect]
     Active Substance: CARBIDOPA\LEVODOPA
  2. DUODOPA [Suspect]
     Active Substance: CARBIDOPA\LEVODOPA
     Indication: PARKINSON^S DISEASE
     Dosage: MD (ML): 5.10, CD(ML): 5.10 ED (ML): 1.50; STRENGTH 20 MG/ML 5 MG/ML
     Route: 050
     Dates: start: 20181205

REACTIONS (2)
  - Malnutrition [Unknown]
  - Death [Fatal]

NARRATIVE: CASE EVENT DATE: 202009
